FAERS Safety Report 9383462 (Version 2)
Quarter: 2013Q3

REPORT INFORMATION
  Report Type: Spontaneous
  Country: FR (occurrence: FR)
  Receive Date: 20130704
  Receipt Date: 20130830
  Transmission Date: 20140515
  Serious: Yes (Other)
  Sender: FDA-Public Use
  Company Number: FR-PFIZER INC-2013195392

PATIENT
  Age: 74 Year
  Sex: Female
  Weight: 58 kg

DRUGS (6)
  1. LYRICA [Suspect]
     Indication: NEUROPATHY PERIPHERAL
     Dosage: 25 MG, 2X/DAY IN THE MORNING AND IN THE EVENING
     Dates: start: 20130530, end: 20130611
  2. LERCAN [Concomitant]
     Indication: HYPERTENSION
     Dosage: 10 MG, 1X/DAY
  3. PRAVASTATIN [Concomitant]
     Indication: HYPERCHOLESTEROLAEMIA
     Dosage: 20 MG, 1X/DAY
  4. AERIUS [Concomitant]
     Indication: HYPERSENSITIVITY
     Dosage: 5 MG, 1X/DAY
  5. PIASCLEDINE [Concomitant]
     Indication: OSTEOARTHRITIS
     Dosage: 300 MG, 1X/DAY
  6. JANUVIA [Concomitant]
     Indication: TYPE 2 DIABETES MELLITUS
     Dosage: 1 DF, 1X/DAY
     Dates: start: 2011

REACTIONS (8)
  - Paralysis [Not Recovered/Not Resolved]
  - Oedema [Not Recovered/Not Resolved]
  - Oedema peripheral [Recovered/Resolved]
  - Pharyngeal oedema [Not Recovered/Not Resolved]
  - Pain in extremity [Not Recovered/Not Resolved]
  - Pain [Recovered/Resolved]
  - Muscle spasms [Recovered/Resolved]
  - Intentional drug misuse [Not Recovered/Not Resolved]
